FAERS Safety Report 17167727 (Version 1)
Quarter: 2019Q4

REPORT INFORMATION
  Report Type: Spontaneous
  Country: FR (occurrence: FR)
  Receive Date: 20191218
  Receipt Date: 20191218
  Transmission Date: 20200122
  Serious: Yes (Hospitalization)
  Sender: FDA-Public Use
  Company Number: FR-AUROBINDO-AUR-APL-2019-105145

PATIENT
  Age: 59 Year
  Sex: Male
  Weight: 71 kg

DRUGS (5)
  1. CEFTRIAXONE. [Suspect]
     Active Substance: CEFTRIAXONE
     Indication: COLITIS
     Dosage: 1 GRAM, ONCE A DAY
     Route: 042
     Dates: start: 201812, end: 20181210
  2. VALPROATE DE SODIUM ARROW [Concomitant]
     Active Substance: VALPROATE SODIUM
     Indication: BIPOLAR DISORDER
     Dosage: 750 MILLIGRAM
     Route: 048
     Dates: start: 201812
  3. HALDOL [Suspect]
     Active Substance: HALOPERIDOL
     Indication: BIPOLAR DISORDER
     Dosage: 5 GTT DROPS, ONCE A DAY
     Route: 048
     Dates: start: 201812
  4. METRONIDAZOLE. [Suspect]
     Active Substance: METRONIDAZOLE
     Indication: COLITIS
     Dosage: 1500 MILLIGRAM, ONCE A DAY
     Route: 042
     Dates: start: 201812, end: 20181210
  5. TERALITHE [Suspect]
     Active Substance: LITHIUM CARBONATE
     Indication: BIPOLAR DISORDER
     Dosage: 1000 MILLIGRAM, ONCE A DAY
     Route: 048
     Dates: start: 201812

REACTIONS (2)
  - Musculoskeletal stiffness [Recovered/Resolved]
  - Extrapyramidal disorder [Recovered/Resolved]

NARRATIVE: CASE EVENT DATE: 20181210
